FAERS Safety Report 6004125-9 (Version None)
Quarter: 2008Q4

REPORT INFORMATION
  Report Type: 
  Country: None (occurrence: None)
  Receive Date: 20081216
  Receipt Date: 20081209
  Transmission Date: 20090506
  Serious: No
  Sender: FDA-Public Use
  Company Number: US-JNJFOC-20081202666

PATIENT
  Sex: Male
  Weight: 115.67 kg

DRUGS (6)
  1. FENTANYL TRANSDERMAL SYSTEM [Suspect]
     Indication: BACK PAIN
     Route: 062
  2. METHADONE HCL [Concomitant]
     Indication: BACK PAIN
     Route: 048
  3. PERCOCET [Concomitant]
     Indication: BACK PAIN
     Dosage: 10 MG EVERY SIX HOURS AS NEEDED
     Route: 048
  4. XANAX [Concomitant]
     Indication: ANXIETY
     Route: 048
  5. SOMA [Concomitant]
     Dosage: 350 (UNITS UNSPECIFIED)
     Route: 062
  6. BUPROPION HCL [Concomitant]
     Indication: DEPRESSION
     Route: 048

REACTIONS (1)
  - WRONG TECHNIQUE IN DRUG USAGE PROCESS [None]
